FAERS Safety Report 15563971 (Version 4)
Quarter: 2019Q1

REPORT INFORMATION
  Report Type: Report from Study
  Country: None (occurrence: JP)
  Receive Date: 20181030
  Receipt Date: 20190124
  Transmission Date: 20190417
  Serious: Yes (Hospitalization)
  Sender: FDA-Public Use
  Company Number: JP-ABBVIE-17K-087-2014504-00

PATIENT
  Age: 66 Year
  Sex: Male
  Weight: 70 kg

DRUGS (13)
  1. DUODOPA [Suspect]
     Active Substance: CARBIDOPA\LEVODOPA
     Indication: PARKINSON^S DISEASE
     Dosage: MD: 10.5 ML, CD: 2.5 ML/HR X 12 HR, ED: 1 ML/UNIT X 3
     Route: 050
     Dates: start: 20170515, end: 20170521
  2. DUODOPA [Suspect]
     Active Substance: CARBIDOPA\LEVODOPA
     Dosage: MD 13 ML CD 1.8 MLHR ? 12 HRS ED 1.2 ML ? 3 TIMES
     Route: 050
     Dates: start: 20180130, end: 20180318
  3. DUODOPA [Suspect]
     Active Substance: CARBIDOPA\LEVODOPA
     Dosage: MD 13 ML CD 3.2 MLHR ? 12 HRS ED 1.4 ML ? 3 TIMES
     Route: 050
     Dates: start: 20180319, end: 20180710
  4. AMANTADINE HYDROCHLORIDE. [Concomitant]
     Active Substance: AMANTADINE HYDROCHLORIDE
     Indication: PARKINSON^S DISEASE
     Route: 048
     Dates: end: 20180129
  5. DUODOPA [Suspect]
     Active Substance: CARBIDOPA\LEVODOPA
     Dosage: MD: 13.5 ML, CD: 3 ML/HR X 12 HR, ED: 1 ML/UNIT X 3
     Route: 050
     Dates: start: 20170522, end: 20170601
  6. AMANTADINE HYDROCHLORIDE. [Concomitant]
     Active Substance: AMANTADINE HYDROCHLORIDE
     Route: 048
     Dates: start: 20180802
  7. DUODOPA [Suspect]
     Active Substance: CARBIDOPA\LEVODOPA
     Dosage: MD: 13 ML?CD: 3.4 ML/HR ? 12 HRS?ED: 1.4 ML/UNIT ? 3 TIMES
     Route: 050
     Dates: start: 20180710, end: 20180824
  8. DUODOPA [Suspect]
     Active Substance: CARBIDOPA\LEVODOPA
     Dosage: MD: 16 ML, CD: 3.6 ML/HR X 14 HR, ED: 1.2 ML/UNIT X 3
     Route: 050
     Dates: start: 20170804, end: 20180824
  9. AMANTADINE HYDROCHLORIDE. [Concomitant]
     Active Substance: AMANTADINE HYDROCHLORIDE
     Route: 048
     Dates: start: 20180517, end: 20180530
  10. TRIHEXYPHENIDYL HYDROCHLORIDE. [Concomitant]
     Active Substance: TRIHEXYPHENIDYL HYDROCHLORIDE
     Indication: PARKINSON^S DISEASE
     Route: 048
     Dates: end: 20180129
  11. CLONAZEPAM. [Concomitant]
     Active Substance: CLONAZEPAM
     Indication: PARKINSON^S DISEASE
     Route: 048
     Dates: end: 20180129
  12. DUODOPA [Suspect]
     Active Substance: CARBIDOPA\LEVODOPA
     Dosage: MD: 15 ML, CD: 3.4 ML/HR X 12 HR, ED: 1.2 ML/UNIT X 3
     Route: 050
     Dates: start: 20170602, end: 20170803
  13. AMANTADINE HYDROCHLORIDE. [Concomitant]
     Active Substance: AMANTADINE HYDROCHLORIDE
     Route: 048
     Dates: start: 20180531, end: 20180801

REACTIONS (11)
  - Therapeutic response decreased [Unknown]
  - Device alarm issue [Recovered/Resolved]
  - Device occlusion [Recovered/Resolved]
  - Gastroduodenal ulcer [Recovered/Resolved]
  - Device kink [Unknown]
  - Device occlusion [Recovered/Resolved]
  - Hallucination [Recovered/Resolved]
  - Device occlusion [Recovered/Resolved]
  - Paranoia [Recovered/Resolved]
  - Device occlusion [Recovered/Resolved]
  - Device dislocation [Unknown]

NARRATIVE: CASE EVENT DATE: 2017
